FAERS Safety Report 22645431 (Version 1)
Quarter: 2023Q2

REPORT INFORMATION
  Report Type: Spontaneous
  Country: US (occurrence: None)
  Receive Date: 20230626
  Receipt Date: 20230626
  Transmission Date: 20230721
  Serious: Yes (Other)
  Sender: FDA-Public Use
  Company Number: None

PATIENT
  Age: 17 Year
  Sex: Male
  Weight: 90 kg

DRUGS (5)
  1. ABILIFY [Suspect]
     Active Substance: ARIPIPRAZOLE
     Indication: Depression
     Dates: start: 20221013, end: 20230622
  2. BUPROPION [Concomitant]
     Active Substance: BUPROPION
  3. FLUOXETINE [Concomitant]
     Active Substance: FLUOXETINE HYDROCHLORIDE
  4. ATOMOXETINE [Concomitant]
     Active Substance: ATOMOXETINE
  5. VITAMIN D3 [Concomitant]
     Active Substance: CHOLECALCIFEROL

REACTIONS (11)
  - Weight increased [None]
  - Hyperphagia [None]
  - Excessive masturbation [None]
  - Compulsive shopping [None]
  - Cognitive disorder [None]
  - Hepatic enzyme increased [None]
  - Vomiting [None]
  - Catatonia [None]
  - Dyspraxia [None]
  - Diet noncompliance [None]
  - Alanine aminotransferase increased [None]

NARRATIVE: CASE EVENT DATE: 20230201
